FAERS Safety Report 7510486-1 (Version None)
Quarter: 2011Q2

REPORT INFORMATION
  Report Type: 
  Country: None (occurrence: None)
  Receive Date: 20110529
  Receipt Date: 20110523
  Transmission Date: 20111010
  Serious: No
  Sender: FDA-Public Use
  Company Number: PHHY2010BR87054

PATIENT
  Sex: Female

DRUGS (2)
  1. FORMOTEROL FUMARATE [Suspect]
     Dosage: UNK
  2. FORMOTEROL FUMARATE [Suspect]
     Dosage: UNK
     Route: 048

REACTIONS (1)
  - BRONCHITIS [None]
